FAERS Safety Report 20310920 (Version 1)
Quarter: 2022Q1

REPORT INFORMATION
  Report Type: Spontaneous
  Country: FR (occurrence: FR)
  Receive Date: 20220107
  Receipt Date: 20220107
  Transmission Date: 20220423
  Serious: Yes (Congenital Anomaly)
  Sender: FDA-Public Use
  Company Number: FR-ABBVIE-22K-056-4222658-00

PATIENT
  Sex: Male

DRUGS (2)
  1. VALPROATE SODIUM [Suspect]
     Active Substance: VALPROATE SODIUM
     Indication: Maternal exposure timing unspecified
     Route: 064
  2. CLOBAZAM [Suspect]
     Active Substance: CLOBAZAM
     Indication: Maternal exposure timing unspecified
     Route: 064

REACTIONS (8)
  - Dysgraphia [Not Recovered/Not Resolved]
  - Aphasia [Not Recovered/Not Resolved]
  - Cryptorchism [Not Recovered/Not Resolved]
  - Dyspraxia [Not Recovered/Not Resolved]
  - Astigmatism [Not Recovered/Not Resolved]
  - Dyscalculia [Not Recovered/Not Resolved]
  - Hypermetropia [Not Recovered/Not Resolved]
  - Foetal exposure during pregnancy [Unknown]
